FAERS Safety Report 19970677 (Version 22)
Quarter: 2022Q4

REPORT INFORMATION
  Report Type: Report from Study
  Country: PT (occurrence: PT)
  Receive Date: 20211020
  Receipt Date: 20221227
  Transmission Date: 20230113
  Serious: Yes (Disabling, Other)
  Sender: FDA-Public Use
  Company Number: PT-ABBVIE-21K-130-4123842-00

PATIENT
  Age: 72 Year
  Sex: Female

DRUGS (18)
  1. CARBIDOPA\LEVODOPA [Suspect]
     Active Substance: CARBIDOPA\LEVODOPA
     Indication: Parkinson^s disease
     Dosage: 20 MG + 5 MG
     Dates: start: 20220407, end: 20221004
  2. CARBIDOPA\LEVODOPA [Suspect]
     Active Substance: CARBIDOPA\LEVODOPA
     Dosage: 20 MG + 5 MG?MORN:11.7;MAINT:4CC/H;EXTRA:2CC
     Route: 050
     Dates: start: 20221004
  3. CARBIDOPA\LEVODOPA [Suspect]
     Active Substance: CARBIDOPA\LEVODOPA
     Dosage: 20 MG + 5 MG
     Dates: start: 20210721, end: 2021
  4. CARBIDOPA\LEVODOPA [Suspect]
     Active Substance: CARBIDOPA\LEVODOPA
     Dosage: 20 MG + 5 MG
     Route: 050
     Dates: start: 2021, end: 20211229
  5. CARBIDOPA\LEVODOPA [Suspect]
     Active Substance: CARBIDOPA\LEVODOPA
     Dosage: MORN:11.7;MAINT:3.8CC/H;EXTRA:1.5CC?20 MG + 5 MG
     Route: 050
     Dates: start: 20221110
  6. CARBIDOPA\LEVODOPA [Suspect]
     Active Substance: CARBIDOPA\LEVODOPA
     Dosage: 20 MG + 5 MG, MORNING:11.7 ;MAINTENANCE:3.9 CC/H; EXTRA:1.5CC
     Route: 050
     Dates: start: 20221110, end: 202212
  7. CARBIDOPA\LEVODOPA [Suspect]
     Active Substance: CARBIDOPA\LEVODOPA
     Dosage: 20 MG + 5 MG (PEG)
     Dates: start: 20221222
  8. CARBIDOPA\LEVODOPA [Suspect]
     Active Substance: CARBIDOPA\LEVODOPA
     Dosage: 20 MG + 5 MG
     Dates: start: 20221004, end: 20221110
  9. CARBIDOPA\LEVODOPA [Suspect]
     Active Substance: CARBIDOPA\LEVODOPA
     Dosage: MOR:13.4CC(8.4+5);MAIN:1.9CC/H;EXTRA:1CC
     Route: 050
     Dates: start: 2021, end: 20211229
  10. CARBIDOPA\LEVODOPA [Suspect]
     Active Substance: CARBIDOPA\LEVODOPA
     Dosage: 20 MG + 5 MG
     Dates: start: 20211229, end: 20220407
  11. safinamide (Xadago) [Concomitant]
     Indication: Product used for unknown indication
  12. AMANTADINE HYDROCHLORIDE [Concomitant]
     Active Substance: AMANTADINE HYDROCHLORIDE
     Indication: Product used for unknown indication
     Dosage: STARTED BEFORE DUODOPA?FORM STRENGTH: 100MG
  13. SERLIN [Concomitant]
     Indication: Product used for unknown indication
     Dosage: STARTED BEFORE DUODOPA?FORM STRENGTH: 100MG
  14. Quetamed [Concomitant]
     Indication: Product used for unknown indication
     Dosage: STARTED BEFORE DUODOPA?FORM STRENGTH: 100MG
  15. RIVOTRIL [Concomitant]
     Active Substance: CLONAZEPAM
     Indication: Product used for unknown indication
     Dosage: BEFORE DUODOPA?FORM STRENGTH: 0.5MG
  16. benserazide (Madopar) [Concomitant]
     Indication: Product used for unknown indication
  17. FOSFOMYCIN [Concomitant]
     Active Substance: FOSFOMYCIN
     Indication: Product used for unknown indication
  18. CLONAZEPAM [Concomitant]
     Active Substance: CLONAZEPAM
     Indication: Product used for unknown indication
     Dosage: FORM STRENGTH: 0.5 MILLIGRAM?BEFORE DUODOPA

REACTIONS (14)
  - Gait disturbance [Not Recovered/Not Resolved]
  - Gait inability [Recovering/Resolving]
  - Torticollis [Recovered/Resolved]
  - Urinary tract infection [Recovered/Resolved]
  - Cervical cord compression [Unknown]
  - Pyrexia [Recovered/Resolved]
  - Device dislocation [Unknown]
  - Hallucination, visual [Recovered/Resolved]
  - Freezing phenomenon [Recovering/Resolving]
  - Chromaturia [Recovered/Resolved]
  - Therapeutic product effect incomplete [Recovered/Resolved]
  - Dyskinesia [Recovering/Resolving]
  - Balance disorder [Recovered/Resolved]
  - Speech disorder [Recovered/Resolved]

NARRATIVE: CASE EVENT DATE: 20210801
